FAERS Safety Report 4812117-8 (Version None)
Quarter: 2005Q4

REPORT INFORMATION
  Report Type: 
  Country: None (occurrence: None)
  Receive Date: 20051027
  Receipt Date: 20051027
  Transmission Date: 20060501
  Serious: Yes (Life-Threatening, Hospitalization)
  Sender: FDA-Public Use
  Company Number: None

PATIENT
  Sex: Female
  Weight: 90 kg

DRUGS (10)
  1. GEMCITABINE [Suspect]
     Indication: LEIOMYOSARCOMA METASTATIC
     Dosage: 1755MG   DAY1 + 8 Q 21D CYC    IV DRIP
     Route: 041
     Dates: start: 20050824, end: 20051001
  2. DOCETAXEL [Suspect]
     Dosage: 195MG    DAY 8 Q 21 DAY CYC    IV DRIP
     Route: 041
  3. NEULASTA [Concomitant]
  4. ATENOLOL [Concomitant]
  5. HYDROCHLOROTHIAZIDE [Concomitant]
  6. SYNTHROID [Concomitant]
  7. COUMADIN [Concomitant]
  8. PRIMAXIN [Concomitant]
  9. LEVAQUIN [Concomitant]
  10. FLUCONAZOLE [Concomitant]

REACTIONS (5)
  - DEHYDRATION [None]
  - DYSPNOEA [None]
  - HYPOTENSION [None]
  - LUNG INFILTRATION [None]
  - VOMITING [None]
